FAERS Safety Report 20485725 (Version 1)
Quarter: 2022Q1

REPORT INFORMATION
  Report Type: Report from Study
  Country: MX (occurrence: MX)
  Receive Date: 20220217
  Receipt Date: 20220217
  Transmission Date: 20220424
  Serious: Yes (Other)
  Sender: FDA-Public Use
  Company Number: MX-ROCHE-3024136

PATIENT
  Age: 70 Year
  Sex: Female
  Weight: 55 kg

DRUGS (1)
  1. ERLOTINIB [Suspect]
     Active Substance: ERLOTINIB
     Indication: Non-small cell lung cancer
     Route: 048

REACTIONS (2)
  - Disease progression [Unknown]
  - Drug ineffective [Unknown]
